FAERS Safety Report 6429910-0 (Version None)
Quarter: 2009Q4

REPORT INFORMATION
  Report Type: 
  Country: None (occurrence: None)
  Receive Date: 20091106
  Receipt Date: 20091028
  Transmission Date: 20100525
  Serious: Yes (Other)
  Sender: FDA-Public Use
  Company Number: US-JNJFOC-20091100120

PATIENT
  Sex: Male
  Weight: 50.35 kg

DRUGS (4)
  1. IMODIUM A-D EZ CHEWS [Suspect]
     Route: 048
     Dates: start: 20091028
  2. IMODIUM A-D EZ CHEWS [Suspect]
     Indication: DIARRHOEA
     Dosage: 1/2 TABLET ONCE
     Route: 048
     Dates: start: 20091028
  3. PROMETHAZINE [Concomitant]
     Indication: NAUSEA
     Route: 065
  4. CLONAZEPAM [Concomitant]
     Indication: ANXIETY
     Route: 065

REACTIONS (4)
  - DYSPNOEA [None]
  - EATING DISORDER [None]
  - HEART RATE INCREASED [None]
  - WRONG TECHNIQUE IN DRUG USAGE PROCESS [None]
